FAERS Safety Report 20583852 (Version 2)
Quarter: 2022Q1

REPORT INFORMATION
  Report Type: Spontaneous
  Country: FR (occurrence: FR)
  Receive Date: 20220311
  Receipt Date: 20220322
  Transmission Date: 20220423
  Serious: Yes (Hospitalization)
  Sender: FDA-Public Use
  Company Number: None

PATIENT
  Age: 95 Year
  Sex: Female
  Weight: 53 kg

DRUGS (5)
  1. TRIMEBUTINE MALEATE [Suspect]
     Active Substance: TRIMEBUTINE MALEATE
     Indication: Diverticulitis
     Dosage: 300 MG, 1X/DAY
     Route: 048
     Dates: start: 20220204, end: 20220221
  2. FLAGYL [Suspect]
     Active Substance: METRONIDAZOLE\METRONIDAZOLE HYDROCHLORIDE
     Indication: Diverticulitis
     Dosage: 1 DF, 3X/DAY (1 TABLET IN MORNING, NOON AND EVENING)
     Route: 048
     Dates: start: 20220207, end: 20220217
  3. ACETAMINOPHEN [Suspect]
     Active Substance: ACETAMINOPHEN
     Indication: Diverticulitis
     Dosage: 3 G, 1X/DAY
     Route: 048
     Dates: start: 20220204, end: 20220221
  4. ONDANSETRON HYDROCHLORIDE [Suspect]
     Active Substance: ONDANSETRON HYDROCHLORIDE
     Indication: Diverticulitis
     Dosage: 16 MG, 1X/DAY (4 MG EVERY 6 HOURS)
     Route: 040
     Dates: start: 20220215, end: 20220221
  5. CEFTRIAXONE [Suspect]
     Active Substance: CEFTRIAXONE
     Indication: Diverticulitis
     Dosage: 1 G, 1X/DAY
     Route: 041
     Dates: start: 20220207, end: 20220217

REACTIONS (1)
  - Neutropenia [Not Recovered/Not Resolved]

NARRATIVE: CASE EVENT DATE: 20220217
